FAERS Safety Report 16403155 (Version 2)
Quarter: 2020Q1

REPORT INFORMATION
  Report Type: Spontaneous
  Country: DE (occurrence: DE)
  Receive Date: 20190607
  Receipt Date: 20200203
  Transmission Date: 20200409
  Serious: Yes (Hospitalization, Other)
  Sender: FDA-Public Use
  Company Number: PHHY2019DE128364

PATIENT
  Sex: Male

DRUGS (7)
  1. HYDROXYUREA. [Suspect]
     Active Substance: HYDROXYUREA
     Indication: CHRONIC MYELOID LEUKAEMIA
     Dosage: 1000 MG, QD
     Route: 065
     Dates: start: 20131031, end: 20131127
  2. GLIVEC [Suspect]
     Active Substance: IMATINIB MESYLATE
     Indication: PRODUCT USED FOR UNKNOWN INDICATION
     Dosage: 400 MG, QD
     Route: 065
     Dates: start: 20131128, end: 20140404
  3. HYDROXYUREA. [Suspect]
     Active Substance: HYDROXYUREA
     Dosage: 500 MG, QD
     Route: 065
     Dates: start: 20140702, end: 20141104
  4. NILOTINIB [Suspect]
     Active Substance: NILOTINIB
     Indication: PRODUCT USED FOR UNKNOWN INDICATION
     Dosage: 600 MG, QD
     Route: 065
     Dates: start: 20150102, end: 20150403
  5. NILOTINIB [Suspect]
     Active Substance: NILOTINIB
     Dosage: 300 MG, QD
     Route: 065
     Dates: start: 20150406, end: 20160105
  6. DASATINIB. [Suspect]
     Active Substance: DASATINIB
     Indication: CHRONIC MYELOID LEUKAEMIA
     Dosage: 100 MG, QD
     Route: 065
     Dates: start: 20140414, end: 20140623
  7. HYDROXYUREA. [Suspect]
     Active Substance: HYDROXYUREA
     Dosage: 2000 MG, QD
     Route: 065
     Dates: start: 20141105, end: 20141216

REACTIONS (10)
  - Nausea [Recovered/Resolved]
  - Pneumonia [Recovered/Resolved]
  - Decreased appetite [Unknown]
  - Chronic obstructive pulmonary disease [Recovered/Resolved]
  - Rib fracture [Recovered/Resolved]
  - Back pain [Recovered/Resolved]
  - Rash maculo-papular [Recovered/Resolved]
  - Femoral neck fracture [Recovered/Resolved]
  - Fall [Recovered/Resolved]
  - Weight decreased [Recovered/Resolved]

NARRATIVE: CASE EVENT DATE: 20140328
